FAERS Safety Report 24719240 (Version 1)
Quarter: 2024Q4

REPORT INFORMATION
  Report Type: Spontaneous
  Country: US (occurrence: None)
  Receive Date: 20241210
  Receipt Date: 20241210
  Transmission Date: 20250115
  Serious: No
  Sender: ALLEGIS PHARMACEUTICALS
  Company Number: US-Allegis Pharmaceuticals, LLC-APL202406-000033

PATIENT
  Age: 83 Year
  Sex: Female

DRUGS (1)
  1. NITROGLYCERIN [Suspect]
     Active Substance: NITROGLYCERIN
     Indication: Product used for unknown indication
     Dosage: UNKNOWN
     Route: 060
     Dates: start: 1991

REACTIONS (3)
  - Product dose omission issue [Unknown]
  - Wrong technique in product usage process [Unknown]
  - Product delivery mechanism issue [Unknown]
